FAERS Safety Report 11258314 (Version 2)
Quarter: 2015Q3

REPORT INFORMATION
  Report Type: Spontaneous
  Country: CA (occurrence: CA)
  Receive Date: 20150710
  Receipt Date: 20150715
  Transmission Date: 20151125
  Serious: Yes (Other)
  Sender: FDA-Public Use
  Company Number: CA-AMGEN-CANSP2015067394

PATIENT
  Age: 22 Year
  Sex: Female

DRUGS (8)
  1. METHOTREXATE [Suspect]
     Active Substance: METHOTREXATE
     Indication: PRODUCT USED FOR UNKNOWN INDICATION
     Dosage: UNK MG, UNK (10-22.5 MG)
     Route: 058
     Dates: start: 200606, end: 2011
  2. ACTEMRA [Suspect]
     Active Substance: TOCILIZUMAB
     Indication: PRODUCT USED FOR UNKNOWN INDICATION
     Dosage: 510 MG, Q4WK
     Route: 042
     Dates: start: 201401, end: 201406
  3. METHOTREXATE [Suspect]
     Active Substance: METHOTREXATE
     Dosage: 20 MG, UNK
     Route: 058
     Dates: start: 201309, end: 201312
  4. RITUXAN [Suspect]
     Active Substance: RITUXIMAB
     Indication: PRODUCT USED FOR UNKNOWN INDICATION
     Dosage: 1000 MG, UNK (DAY 1 AND 15)
     Route: 042
     Dates: start: 201407, end: 201502
  5. REMICADE [Suspect]
     Active Substance: INFLIXIMAB
     Indication: PRODUCT USED FOR UNKNOWN INDICATION
     Dosage: UNK (5 MG/KG Q 8 WEEKS AND THEN 6 WEEKS)
     Route: 065
     Dates: start: 201007, end: 201401
  6. HUMIRA [Suspect]
     Active Substance: ADALIMUMAB
     Indication: PRODUCT USED FOR UNKNOWN INDICATION
     Dosage: UNK
     Route: 065
     Dates: start: 200908, end: 201005
  7. ENBREL [Suspect]
     Active Substance: ETANERCEPT
     Indication: PRODUCT USED FOR UNKNOWN INDICATION
     Dosage: UNK
     Route: 065
     Dates: start: 200810, end: 200906
  8. METHOTREXATE [Suspect]
     Active Substance: METHOTREXATE
     Dosage: 7.5 MG, UNK
     Route: 048
     Dates: start: 201506

REACTIONS (11)
  - Therapeutic response decreased [Unknown]
  - Pain [Unknown]
  - Arthralgia [Unknown]
  - Synovitis [Unknown]
  - Rheumatoid arthritis [Unknown]
  - Fatigue [Unknown]
  - Dyspnoea [Unknown]
  - Vomiting [Unknown]
  - Activities of daily living impaired [Unknown]
  - Chest pain [Unknown]
  - Drug ineffective [Unknown]
